FAERS Safety Report 8012040-4 (Version None)
Quarter: 2011Q4

REPORT INFORMATION
  Report Type: 
  Country: None (occurrence: None)
  Receive Date: 20111228
  Receipt Date: 20111219
  Transmission Date: 20120403
  Serious: Yes (Other)
  Sender: FDA-Public Use
  Company Number: JP-GLAXOSMITHKLINE-B0771106A

PATIENT
  Sex: Male

DRUGS (2)
  1. PAXIL [Suspect]
     Indication: PRODUCT USED FOR UNKNOWN INDICATION
     Route: 048
     Dates: start: 20111212
  2. DEPAS [Concomitant]
     Indication: FEELING ABNORMAL
     Route: 048

REACTIONS (8)
  - RETCHING [None]
  - NAUSEA [None]
  - BLOOD PRESSURE INCREASED [None]
  - CONVULSION [None]
  - HYPERVENTILATION [None]
  - TREMOR [None]
  - ANXIETY [None]
  - ASTERIXIS [None]
